FAERS Safety Report 17039317 (Version 1)
Quarter: 2019Q4

REPORT INFORMATION
  Report Type: Spontaneous
  Country: US (occurrence: US)
  Receive Date: 20191115
  Receipt Date: 20191115
  Transmission Date: 20200122
  Serious: No
  Sender: FDA-Public Use
  Company Number: US-GLAXOSMITHKLINE-US2019AMR205235

PATIENT

DRUGS (1)
  1. LAMOTRIGINE TABLET [Suspect]
     Active Substance: LAMOTRIGINE
     Indication: SEIZURE
     Dosage: UNK UNK, QD
     Route: 065

REACTIONS (4)
  - Depression [Unknown]
  - Adverse drug reaction [Unknown]
  - Anxiety [Not Recovered/Not Resolved]
  - Product substitution issue [Unknown]
